FAERS Safety Report 11255349 (Version 1)
Quarter: 2015Q3

REPORT INFORMATION
  Report Type: Spontaneous
  Country: SE (occurrence: SE)
  Receive Date: 20150709
  Receipt Date: 20150709
  Transmission Date: 20151125
  Serious: Yes (Disabling)
  Sender: FDA-Public Use
  Company Number: SE-009507513-1507SWE001988

PATIENT
  Age: 3 Year
  Sex: Male

DRUGS (1)
  1. TRILAFON [Suspect]
     Active Substance: PERPHENAZINE
     Dosage: 2 MG, UNK
     Route: 064

REACTIONS (2)
  - Autism [Recovered/Resolved with Sequelae]
  - Foetal exposure during pregnancy [Recovered/Resolved with Sequelae]
